FAERS Safety Report 5903243-0 (Version None)
Quarter: 2008Q3

REPORT INFORMATION
  Report Type: 
  Country: None (occurrence: None)
  Receive Date: 20080926
  Receipt Date: 20080912
  Transmission Date: 20090109
  Serious: Yes (Hospitalization)
  Sender: FDA-Public Use
  Company Number: 235988K07USA

PATIENT
  Age: 52 Year
  Sex: Female
  Weight: 40.9 kg

DRUGS (3)
  1. REBIF [Suspect]
     Indication: MULTIPLE SCLEROSIS
     Dosage: 44 MCG,3 IN 1 WEEKS, SUBCUTANEOUS
     Route: 058
     Dates: start: 20021120, end: 20070706
  2. OXYBUTYNIN (OXYBUTYNIN/00538901/) [Concomitant]
  3. ZYRTEC [Concomitant]

REACTIONS (6)
  - GAIT DISTURBANCE [None]
  - INJECTION SITE CELLULITIS [None]
  - INJECTION SITE INFECTION [None]
  - OEDEMA PERIPHERAL [None]
  - PAIN [None]
  - PYREXIA [None]
